FAERS Safety Report 17551001 (Version 1)
Quarter: 2020Q1

REPORT INFORMATION
  Report Type: Spontaneous
  Country: US (occurrence: US)
  Receive Date: 20200306
  Receipt Date: 20200306
  Transmission Date: 20200409
  Serious: Yes (Hospitalization)
  Sender: FDA-Public Use
  Company Number: None

PATIENT
  Age: 76 Year
  Sex: Male
  Weight: 90.8 kg

DRUGS (2)
  1. EDOXABAN [Suspect]
     Active Substance: EDOXABAN TOSYLATE
     Indication: PULMONARY EMBOLISM
     Route: 048
     Dates: start: 20180621, end: 20180801
  2. ASPIRIN (ASPIRIN 81MG TAB, EC) [Suspect]
     Active Substance: ASPIRIN
     Indication: CORONARY ARTERIAL STENT INSERTION
     Route: 048
     Dates: start: 20040101

REACTIONS (8)
  - Gastritis erosive [None]
  - Angiodysplasia [None]
  - Gastric haemorrhage [None]
  - Hiatus hernia [None]
  - Haemoglobin decreased [None]
  - Lower gastrointestinal haemorrhage [None]
  - Hypotension [None]
  - Gastrointestinal arteriovenous malformation [None]

NARRATIVE: CASE EVENT DATE: 20180803
